FAERS Safety Report 24142471 (Version 2)
Quarter: 2024Q3

REPORT INFORMATION
  Report Type: Report from Study
  Country: US (occurrence: US)
  Receive Date: 20240726
  Receipt Date: 20240812
  Transmission Date: 20241017
  Serious: Yes (Death, Hospitalization)
  Sender: AKEBIA THERAPEUTICS
  Company Number: US-KERYX BIOPHARMACEUTICALS INC.-US-AKEB-24-001108

PATIENT
  Sex: Female

DRUGS (1)
  1. AURYXIA [Suspect]
     Active Substance: TETRAFERRIC TRICITRATE DECAHYDRATE
     Indication: Hyperphosphataemia
     Dosage: 9 DOSAGE FORM, QD
     Route: 048

REACTIONS (4)
  - Circulatory collapse [Fatal]
  - Osteomyelitis [Fatal]
  - Mitral valve incompetence [Fatal]
  - Multiple organ dysfunction syndrome [Fatal]
